FAERS Safety Report 20819422 (Version 1)
Quarter: 2022Q2

REPORT INFORMATION
  Report Type: Spontaneous
  Country: US (occurrence: None)
  Receive Date: 20220511
  Receipt Date: 20220511
  Transmission Date: 20220721
  Serious: Yes (Death)
  Sender: FDA-Public Use
  Company Number: None

PATIENT
  Age: 84 Year
  Sex: Female
  Weight: 62.1 kg

DRUGS (13)
  1. IBRANCE [Suspect]
     Active Substance: PALBOCICLIB
     Indication: Breast cancer
     Dosage: FREQUENCY : DAILY;?
     Route: 048
     Dates: start: 20220107, end: 20220424
  2. AMLODIPINE AND ATORVASTATIN [Concomitant]
     Active Substance: AMLODIPINE BESYLATE\ATORVASTATIN CALCIUM
  3. ASPIRIN [Concomitant]
     Active Substance: ASPIRIN
  4. BIOTIN [Concomitant]
     Active Substance: BIOTIN
  5. CALCIUM ACETATE [Concomitant]
     Active Substance: CALCIUM ACETATE
  6. FERROUS SULFATE [Concomitant]
     Active Substance: FERROUS SULFATE
  7. NORCO [Concomitant]
     Active Substance: ACETAMINOPHEN\HYDROCODONE BITARTRATE
  8. LETROZOLE [Concomitant]
     Active Substance: LETROZOLE
  9. OMEPRAZOLE [Concomitant]
     Active Substance: OMEPRAZOLE
  10. PAMIDRONATE [Concomitant]
     Active Substance: PAMIDRONATE DISODIUM
  11. SENNA [Concomitant]
     Active Substance: SENNA LEAF\SENNOSIDES\SENNOSIDES A AND B
  12. DULOXETINE [Concomitant]
     Active Substance: DULOXETINE
  13. PREDNISONE [Concomitant]
     Active Substance: PREDNISONE

REACTIONS (1)
  - Death [None]

NARRATIVE: CASE EVENT DATE: 20220424
